FAERS Safety Report 9331030 (Version 1)
Quarter: 2013Q2

REPORT INFORMATION
  Report Type: Report from Study
  Country: JP (occurrence: JP)
  Receive Date: 20130605
  Receipt Date: 20130605
  Transmission Date: 20140414
  Serious: Yes (Hospitalization)
  Sender: FDA-Public Use
  Company Number: JP-JNJFOC-20130517322

PATIENT
  Age: 43 Year
  Sex: Female
  Weight: 47 kg

DRUGS (28)
  1. ITRIZOLE [Suspect]
     Indication: ANTIFUNGAL PROPHYLAXIS
     Route: 048
     Dates: start: 20121004
  2. L-ASPARAGINASE [Suspect]
     Indication: PRODUCT USED FOR UNKNOWN INDICATION
     Dosage: 4230 U
     Route: 065
     Dates: start: 20121009, end: 20121020
  3. ALOSITOL [Concomitant]
     Indication: PROPHYLAXIS
     Route: 048
     Dates: start: 20120930, end: 20121010
  4. GASTER D [Concomitant]
     Indication: PROPHYLAXIS
     Route: 048
     Dates: start: 20120930, end: 20121029
  5. BAKTAR [Concomitant]
     Indication: PROPHYLAXIS
     Route: 048
     Dates: start: 20121002
  6. POLYMYXIN B SULFATE [Concomitant]
     Indication: PROPHYLAXIS
     Dosage: 30000000U
     Route: 048
     Dates: start: 20120930, end: 20121121
  7. PREDONINE [Concomitant]
     Dosage: 85 MG TO 5 MG
     Route: 048
     Dates: start: 20121001, end: 20121028
  8. PANTOSIN [Concomitant]
     Indication: PROPHYLAXIS
     Route: 048
     Dates: start: 20121006, end: 20121107
  9. MAGNESIUM OXIDE [Concomitant]
     Indication: PROPHYLAXIS
     Route: 048
     Dates: start: 20121006
  10. BENET [Concomitant]
     Indication: PROPHYLAXIS
     Route: 048
     Dates: start: 20121005
  11. GASCON [Concomitant]
     Route: 048
     Dates: start: 20121024, end: 20121031
  12. TAKEPRON [Concomitant]
     Indication: PROPHYLAXIS
     Route: 048
     Dates: start: 20121030, end: 20121121
  13. ULCERLMIN [Concomitant]
     Indication: PRODUCT USED FOR UNKNOWN INDICATION
     Route: 048
     Dates: start: 20121030, end: 20121107
  14. EPL [Concomitant]
     Route: 048
     Dates: start: 20121101, end: 20121114
  15. URSO [Concomitant]
     Route: 048
     Dates: start: 20121108
  16. ONCOVIN [Concomitant]
     Route: 065
     Dates: start: 20121008, end: 20121022
  17. KYTRIL [Concomitant]
     Route: 065
     Dates: start: 20121001, end: 20121022
  18. NEUTROGIN [Concomitant]
     Route: 065
     Dates: start: 20121010, end: 20121013
  19. FIRSTCIN [Concomitant]
     Route: 065
     Dates: start: 20121012, end: 20121022
  20. ANTHROBIN [Concomitant]
     Route: 065
     Dates: start: 20121019
  21. GLYCYRRHIZIC ACID/GLYCINE/CYSTEINE [Concomitant]
     Route: 065
     Dates: start: 20121108, end: 20121205
  22. CYLOCIDE [Concomitant]
     Route: 065
     Dates: start: 20121126, end: 20121128
  23. VEPESID [Concomitant]
     Route: 065
     Dates: start: 20121126, end: 20121128
  24. DECADRON [Concomitant]
     Route: 065
     Dates: start: 20121126, end: 20121128
  25. FIRSTCIN [Concomitant]
     Route: 065
     Dates: start: 20121209, end: 20121217
  26. AMIKACIN SULFATE [Concomitant]
     Route: 065
     Dates: start: 20121209, end: 20121217
  27. SOSEGON (PENTAZOCINE) [Concomitant]
     Route: 065
     Dates: start: 20121029
  28. NEOPHAGEN C [Concomitant]
     Route: 048
     Dates: start: 20121106

REACTIONS (2)
  - Liver disorder [Recovering/Resolving]
  - Hepatic steatosis [Recovering/Resolving]
